FAERS Safety Report 21162443 (Version 1)
Quarter: 2022Q3

REPORT INFORMATION
  Report Type: Spontaneous
  Country: US (occurrence: None)
  Receive Date: 20220802
  Receipt Date: 20220802
  Transmission Date: 20221027
  Serious: Yes (Hospitalization, Other)
  Sender: FDA-Public Use
  Company Number: None

PATIENT
  Age: 56 Year
  Sex: Female
  Weight: 76.5 kg

DRUGS (3)
  1. KENALOG-40 [Suspect]
     Active Substance: TRIAMCINOLONE ACETONIDE
     Indication: Arthritis
     Dosage: OTHER FREQUENCY : ONE TIME INJECTION;?OTHER ROUTE : INTRAARTICULAR HIP JOINT;?
     Route: 050
     Dates: start: 20220602
  2. VITAMIN B12 [Concomitant]
     Active Substance: CYANOCOBALAMIN
  3. VITAMIN D [Concomitant]
     Active Substance: VITAMIN D NOS

REACTIONS (8)
  - Blood pressure increased [None]
  - Abdominal discomfort [None]
  - Nausea [None]
  - Vomiting [None]
  - Weight decreased [None]
  - Anxiety [None]
  - Tinnitus [None]
  - Mood altered [None]

NARRATIVE: CASE EVENT DATE: 20220608
